FAERS Safety Report 9772764 (Version 2)
Quarter: 2013Q4

REPORT INFORMATION
  Report Type: Spontaneous
  Country: US (occurrence: US)
  Receive Date: 20131219
  Receipt Date: 20131219
  Transmission Date: 20140711
  Serious: No
  Sender: FDA-Public Use
  Company Number: US-GILEAD-2013-0087085

PATIENT
  Sex: Female

DRUGS (6)
  1. LETAIRIS [Suspect]
     Indication: PULMONARY HYPERTENSION
     Dosage: 10 MG, QD
     Route: 048
     Dates: start: 20090211
  2. LETAIRIS [Suspect]
     Indication: EISENMENGER^S SYNDROME
  3. VENTAVIS [Concomitant]
  4. ADCIRCA [Concomitant]
  5. COUMADIN                           /00014802/ [Concomitant]
  6. REVATIO [Concomitant]

REACTIONS (1)
  - Dyspnoea [Unknown]
